FAERS Safety Report 10720993 (Version 1)
Quarter: 2015Q1

REPORT INFORMATION
  Report Type: Spontaneous
  Country: FR (occurrence: FR)
  Receive Date: 20150119
  Receipt Date: 20150119
  Transmission Date: 20150721
  Serious: Yes (Hospitalization)
  Sender: FDA-Public Use
  Company Number: PHHY2015FR005338

PATIENT
  Age: 58 Year
  Sex: Male

DRUGS (3)
  1. TAREG [Suspect]
     Active Substance: VALSARTAN
     Indication: SUICIDE ATTEMPT
     Dosage: 80 MG, QD
     Route: 048
     Dates: start: 20140616, end: 20140616
  2. SERESTA [Suspect]
     Active Substance: OXAZEPAM
     Indication: SUICIDE ATTEMPT
     Dosage: QD
     Route: 048
     Dates: start: 20140616, end: 20140616
  3. KALEORID LP [Concomitant]
     Indication: PRODUCT USED FOR UNKNOWN INDICATION
     Dosage: 600 MG,
     Route: 065

REACTIONS (3)
  - Poisoning deliberate [Recovered/Resolved]
  - Depressed level of consciousness [Recovered/Resolved]
  - Arrhythmia [Recovered/Resolved]

NARRATIVE: CASE EVENT DATE: 20140616
